FAERS Safety Report 15787024 (Version 23)
Quarter: 2025Q2

REPORT INFORMATION
  Report Type: Report from Study
  Country: US (occurrence: US)
  Receive Date: 20190103
  Receipt Date: 20250528
  Transmission Date: 20250717
  Serious: Yes (Hospitalization, Other)
  Sender: TAKEDA
  Company Number: US-TAKEDA-2018TUS036993

PATIENT
  Age: 69 Year
  Sex: Female
  Weight: 73 kg

DRUGS (16)
  1. PONATINIB [Suspect]
     Active Substance: PONATINIB
     Indication: Chronic myeloid leukaemia
     Dosage: 15 MILLIGRAM, QD
     Dates: start: 20140504
  2. PONATINIB [Suspect]
     Active Substance: PONATINIB
  3. PONATINIB [Suspect]
     Active Substance: PONATINIB
  4. CLONAZEPAM [Concomitant]
     Active Substance: CLONAZEPAM
  5. OXYCODONE [Concomitant]
     Active Substance: OXYCODONE
  6. CALCIUM [Concomitant]
     Active Substance: CALCIUM
  7. NITROGLYCERIN [Concomitant]
     Active Substance: NITROGLYCERIN
  8. LEXAPRO [Concomitant]
     Active Substance: ESCITALOPRAM OXALATE
  9. METFORMIN [Concomitant]
     Active Substance: METFORMIN HYDROCHLORIDE
  10. ROSUVASTATIN [Concomitant]
     Active Substance: ROSUVASTATIN
  11. GABAPENTIN [Concomitant]
     Active Substance: GABAPENTIN
  12. NORVASC [Concomitant]
     Active Substance: AMLODIPINE BESYLATE
  13. Aspin [Concomitant]
  14. MAGNESIUM [Concomitant]
     Active Substance: MAGNESIUM
  15. KLONOPIN [Concomitant]
     Active Substance: CLONAZEPAM
  16. VISTARIL [Concomitant]
     Active Substance: HYDROXYZINE PAMOATE

REACTIONS (23)
  - Neuropathy peripheral [Not Recovered/Not Resolved]
  - Blood creatine phosphokinase increased [Unknown]
  - Ankle fracture [Unknown]
  - Fall [Unknown]
  - Accident [Unknown]
  - Tooth injury [Unknown]
  - Allergy to arthropod sting [Unknown]
  - Dental caries [Recovered/Resolved]
  - Gait disturbance [Unknown]
  - Restless legs syndrome [Not Recovered/Not Resolved]
  - Feeling abnormal [Not Recovered/Not Resolved]
  - Balance disorder [Not Recovered/Not Resolved]
  - COVID-19 [Recovering/Resolving]
  - Tumour marker increased [Unknown]
  - Product dose omission issue [Recovered/Resolved]
  - Product use issue [Unknown]
  - Off label use [Unknown]
  - Headache [Unknown]
  - Pain [Unknown]
  - Insomnia [Unknown]
  - Arthralgia [Unknown]
  - Myalgia [Not Recovered/Not Resolved]
  - Fatigue [Recovering/Resolving]

NARRATIVE: CASE EVENT DATE: 20230705
